FAERS Safety Report 11432824 (Version 1)
Quarter: 2015Q3

REPORT INFORMATION
  Report Type: Report from Study
  Country: US (occurrence: US)
  Receive Date: 20150828
  Receipt Date: 20150828
  Transmission Date: 20151125
  Serious: Yes (Other)
  Sender: FDA-Public Use
  Company Number: US-ABBVIE-15P-163-1452170-00

PATIENT
  Age: 75 Year
  Sex: Male

DRUGS (1)
  1. DUOPA [Suspect]
     Active Substance: CARBIDOPA\LEVODOPA
     Indication: PARKINSON^S DISEASE
     Route: 050

REACTIONS (9)
  - Stoma site irritation [Unknown]
  - Anaemia [Not Recovered/Not Resolved]
  - Stoma site haemorrhage [Unknown]
  - Haemoglobin decreased [Unknown]
  - Faeces discoloured [Unknown]
  - Rectal haemorrhage [Recovered/Resolved]
  - Gastrointestinal haemorrhage [Unknown]
  - Diverticulum [Recovered/Resolved]
  - Device leakage [Unknown]

NARRATIVE: CASE EVENT DATE: 201508
